FAERS Safety Report 10175156 (Version 1)
Quarter: 2014Q2

REPORT INFORMATION
  Report Type: Spontaneous
  Country: US (occurrence: US)
  Receive Date: 20140515
  Receipt Date: 20140515
  Transmission Date: 20141212
  Serious: Yes (Other)
  Sender: FDA-Public Use
  Company Number: US-PFIZER INC-2014129551

PATIENT
  Age: 45 Year
  Sex: Male

DRUGS (1)
  1. XYNTHA [Suspect]
     Indication: HAEMOPHILIA
     Dosage: UNK
     Route: 042

REACTIONS (2)
  - Factor VIII inhibition [Unknown]
  - Haemorrhoids [Unknown]
